FAERS Safety Report 13072067 (Version 2)
Quarter: 2017Q1

REPORT INFORMATION
  Report Type: Report from Study
  Country: US (occurrence: US)
  Receive Date: 20161229
  Receipt Date: 20170323
  Transmission Date: 20170428
  Serious: Yes (Hospitalization)
  Sender: FDA-Public Use
  Company Number: US-JNJFOC-20161221293

PATIENT
  Age: 48 Year
  Sex: Male
  Weight: 122.47 kg

DRUGS (5)
  1. FLAGYL [Concomitant]
     Active Substance: METRONIDAZOLE\METRONIDAZOLE HYDROCHLORIDE
     Indication: INCISIONAL DRAINAGE
     Route: 048
     Dates: start: 201611
  2. LEVAQUIN [Suspect]
     Active Substance: LEVOFLOXACIN
     Indication: INCISIONAL DRAINAGE
     Route: 048
     Dates: start: 20161118, end: 20161202
  3. AMITRIPTYLINE [Concomitant]
     Active Substance: AMITRIPTYLINE
     Indication: INSOMNIA
     Route: 048
  4. METOPROLOL. [Concomitant]
     Active Substance: METOPROLOL
     Indication: HYPERTENSION
     Route: 048
  5. STELARA [Suspect]
     Active Substance: USTEKINUMAB
     Indication: CROHN^S DISEASE
     Route: 042
     Dates: start: 20161103

REACTIONS (1)
  - Perirectal abscess [Unknown]

NARRATIVE: CASE EVENT DATE: 20161117
